FAERS Safety Report 9292193 (Version 1)
Quarter: 2012Q4

REPORT INFORMATION
  Report Type: Spontaneous
  Country: BR (occurrence: None)
  Receive Date: 20121015
  Receipt Date: 20121015
  Transmission Date: 20130627
  Serious: Yes (Hospitalization)
  Sender: FDA-Public Use
  Company Number: 7146313

PATIENT
  Age: 52 Year
  Sex: Female

DRUGS (1)
  1. LEVOTHYROXINE SODIUM [Suspect]
     Indication: THYROID DISORDER
     Dosage: 1 DF(1 DF, 1 in 1 D)
     Dates: start: 20120601, end: 20120629

REACTIONS (8)
  - Gastrointestinal surgery [None]
  - Blood thyroid stimulating hormone increased [None]
  - Gastritis [None]
  - Hypersomnia [None]
  - Apathy [None]
  - Malaise [None]
  - Diarrhoea [None]
  - Drug ineffective [None]
